FAERS Safety Report 17552749 (Version 3)
Quarter: 2021Q1

REPORT INFORMATION
  Report Type: Spontaneous
  Country: FR (occurrence: FR)
  Receive Date: 20200318
  Receipt Date: 20210210
  Transmission Date: 20210419
  Serious: Yes (Hospitalization, Other)
  Sender: FDA-Public Use
  Company Number: FR-AUROBINDO-AUR-APL-2017-19807

PATIENT
  Age: 25 Year
  Sex: Female

DRUGS (3)
  1. ACETYLCYSTEINE. [Suspect]
     Active Substance: ACETYLCYSTEINE
     Indication: PRODUCT USED FOR UNKNOWN INDICATION
     Dosage: UNK
     Route: 042
  2. CLOBAZAM. [Concomitant]
     Active Substance: CLOBAZAM
     Indication: EPILEPSY
     Dosage: UNK
     Route: 065
  3. PARACETAMOL [Suspect]
     Active Substance: ACETAMINOPHEN
     Indication: PRODUCT USED FOR UNKNOWN INDICATION
     Dosage: 24 GRAM ONCE TOTAL
     Route: 048

REACTIONS (15)
  - Encephalopathy [Recovered/Resolved]
  - Prothrombin time shortened [Unknown]
  - Toxicity to various agents [Unknown]
  - Caesarean section [Unknown]
  - Live birth [Unknown]
  - Liver injury [Unknown]
  - Amniotic cavity infection [Recovered/Resolved]
  - Pregnancy [Recovered/Resolved]
  - Amenorrhoea [Unknown]
  - Hepatic failure [Recovered/Resolved]
  - Hepatocellular injury [Recovered/Resolved]
  - Pyrexia [Unknown]
  - Intentional overdose [Recovered/Resolved]
  - Exposure during pregnancy [Unknown]
  - Premature delivery [Recovered/Resolved]
